FAERS Safety Report 18668790 (Version 1)
Quarter: 2020Q4

REPORT INFORMATION
  Report Type: Spontaneous
  Country: ES (occurrence: ES)
  Receive Date: 20201228
  Receipt Date: 20201228
  Transmission Date: 20210114
  Serious: Yes (Congenital Anomaly)
  Sender: FDA-Public Use
  Company Number: ES-ACCORD-212600

PATIENT
  Sex: Female

DRUGS (1)
  1. FLUOXETINE [Suspect]
     Active Substance: FLUOXETINE HYDROCHLORIDE
     Indication: PRODUCT USED FOR UNKNOWN INDICATION
     Dates: start: 20190909, end: 202009

REACTIONS (4)
  - Exposure during pregnancy [Unknown]
  - Hypocalcaemia [Unknown]
  - Eosinophilia [Unknown]
  - Heart disease congenital [Unknown]

NARRATIVE: CASE EVENT DATE: 2020
